FAERS Safety Report 23950368 (Version 2)
Quarter: 2024Q2

REPORT INFORMATION
  Report Type: Spontaneous
  Country: US (occurrence: US)
  Receive Date: 20240607
  Receipt Date: 20240619
  Transmission Date: 20240715
  Serious: No
  Sender: FDA-Public Use
  Company Number: US-002147023-NVSC2024US119835

PATIENT
  Sex: Female
  Weight: 20.1 kg

DRUGS (3)
  1. MEKINIST [Suspect]
     Active Substance: TRAMETINIB DIMETHYL SULFOXIDE
     Indication: Product used for unknown indication
     Dosage: 13 ML, QD (ORAL SOLUTION)
     Route: 048
     Dates: start: 202405
  2. TAFINLAR [Suspect]
     Active Substance: DABRAFENIB MESYLATE
     Indication: Product used for unknown indication
     Dosage: 50 MG, BID (ORAL SOLUTION)
     Route: 048
     Dates: start: 202405
  3. ZYRTEC [Concomitant]
     Active Substance: CETIRIZINE HYDROCHLORIDE
     Indication: Product used for unknown indication
     Dosage: UNK (FOR 2 WEEKS)
     Route: 065

REACTIONS (2)
  - Rash [Unknown]
  - Pyrexia [Unknown]
